FAERS Safety Report 4596541-7 (Version None)
Quarter: 2005Q1

REPORT INFORMATION
  Report Type: 
  Country: None (occurrence: None)
  Receive Date: 20050228
  Receipt Date: 20050214
  Transmission Date: 20050727
  Serious: Yes (Life-Threatening)
  Sender: FDA-Public Use
  Company Number: GB-2005-002030

PATIENT
  Age: 31 Year
  Sex: Female
  Weight: 82 kg

DRUGS (1)
  1. MIRENA [Suspect]
     Indication: CONTRACEPTION
     Dosage: INTRA-UTERINE
     Route: 015
     Dates: start: 20041004

REACTIONS (3)
  - MITRAL VALVE INCOMPETENCE [None]
  - TRANSIENT ISCHAEMIC ATTACK [None]
  - VENOUS INSUFFICIENCY [None]
